FAERS Safety Report 12483820 (Version 4)
Quarter: 2017Q2

REPORT INFORMATION
  Report Type: Report from Study
  Country: DE (occurrence: DE)
  Receive Date: 20160621
  Receipt Date: 20170418
  Transmission Date: 20170830
  Serious: Yes (Hospitalization, Other)
  Sender: FDA-Public Use
  Company Number: PHHY2016DE084102

PATIENT
  Sex: Male

DRUGS (1)
  1. TASIGNA [Suspect]
     Active Substance: NILOTINIB
     Indication: CHRONIC MYELOID LEUKAEMIA
     Dosage: 600 MG, QD (ON 18 JUL 2016, THE PATIENT RECEIVED LAST DOSE OF TASIGNA)
     Route: 048
     Dates: start: 20131216

REACTIONS (6)
  - Chronic myeloid leukaemia [Unknown]
  - Aphasia [Recovered/Resolved]
  - Malignant neoplasm progression [Unknown]
  - Hyperlipidaemia [Recovering/Resolving]
  - Cerebral infarction [Recovered/Resolved]
  - Hypertension [Recovering/Resolving]

NARRATIVE: CASE EVENT DATE: 201606
